FAERS Safety Report 22320829 (Version 1)
Quarter: 2023Q2

REPORT INFORMATION
  Report Type: Spontaneous
  Country: US (occurrence: None)
  Receive Date: 20230512
  Receipt Date: 20230512
  Transmission Date: 20230721
  Serious: Yes (Hospitalization, Other)
  Sender: FDA-Public Use
  Company Number: None

PATIENT
  Age: 71 Year
  Sex: Male

DRUGS (3)
  1. SUNITINIB [Suspect]
     Active Substance: SUNITINIB
     Indication: Malignant connective tissue neoplasm
     Dosage: 1 CAP QD PO?
     Route: 048
     Dates: start: 20211108, end: 20221213
  2. SUNITINIB [Suspect]
     Active Substance: SUNITINIB
     Indication: Soft tissue sarcoma
  3. SUNITINIB [Suspect]
     Active Substance: SUNITINIB
     Indication: Metastases to lung

REACTIONS (4)
  - Cardiac failure [None]
  - Respiratory failure [None]
  - Atrial fibrillation [None]
  - Malignant neoplasm progression [None]

NARRATIVE: CASE EVENT DATE: 20230512
